FAERS Safety Report 11345825 (Version 2)
Quarter: 2015Q4

REPORT INFORMATION
  Report Type: Report from Study
  Country: CN (occurrence: CN)
  Receive Date: 20150806
  Receipt Date: 20151210
  Transmission Date: 20160304
  Serious: Yes (Death, Hospitalization)
  Sender: FDA-Public Use
  Company Number: CN-ASTRAZENECA-2015SE76144

PATIENT
  Age: 20712 Day
  Sex: Male

DRUGS (5)
  1. AZD2281 [Suspect]
     Active Substance: OLAPARIB
     Indication: GASTRIC CANCER
     Route: 048
     Dates: start: 20150727, end: 20150727
  2. PACLITAXEL. [Suspect]
     Active Substance: PACLITAXEL
     Indication: GASTRIC CANCER
     Dosage: 80 MG/M2 ON DAYS 1, 8 AND 15 OF A 28 DAY CYCLE.
     Route: 042
     Dates: start: 20150714, end: 20150714
  3. AZD2281 [Suspect]
     Active Substance: OLAPARIB
     Indication: GASTRIC CANCER
     Route: 048
     Dates: start: 20150626, end: 20150626
  4. PACLITAXEL. [Suspect]
     Active Substance: PACLITAXEL
     Indication: GASTRIC CANCER
     Dosage: 80 MG/M2 ON DAYS 1, 8 AND 15 OF A 28 DAY CYCLE.
     Route: 042
     Dates: start: 20150707, end: 20150707
  5. PACLITAXEL. [Suspect]
     Active Substance: PACLITAXEL
     Indication: GASTRIC CANCER
     Dosage: 80 MG/M2 ON DAYS 1, 8 AND 15 OF A 28 DAY CYCLE.
     Route: 042
     Dates: start: 20150626, end: 20150726

REACTIONS (1)
  - Intestinal obstruction [Not Recovered/Not Resolved]

NARRATIVE: CASE EVENT DATE: 20150727
